FAERS Safety Report 23606741 (Version 1)
Quarter: 2024Q1

REPORT INFORMATION
  Report Type: Report from Study
  Country: US (occurrence: None)
  Receive Date: 20240307
  Receipt Date: 20240307
  Transmission Date: 20240410
  Serious: Yes (Other)
  Sender: FDA-Public Use
  Company Number: 2024A050527

PATIENT
  Sex: Female

DRUGS (1)
  1. LYNPARZA [Suspect]
     Active Substance: OLAPARIB
     Indication: Breast cancer female
     Route: 048
     Dates: start: 20230710

REACTIONS (6)
  - Cellulitis [Unknown]
  - Pain [Unknown]
  - Gait inability [Unknown]
  - Cystitis [Unknown]
  - Dehydration [Unknown]
  - Pyrexia [Unknown]
